FAERS Safety Report 7264797-8 (Version None)
Quarter: 2011Q1

REPORT INFORMATION
  Report Type: 
  Country: None (occurrence: None)
  Receive Date: 20110131
  Receipt Date: 20110122
  Transmission Date: 20110831
  Serious: Yes (Other)
  Sender: FDA-Public Use
  Company Number: CA-US-EMD SERONO, INC.-7027443

PATIENT
  Sex: Female

DRUGS (8)
  1. TYLENOL-500 [Concomitant]
  2. MULTIVITAMIN SENIOR FORMULA [Concomitant]
  3. PANTOLOC [Concomitant]
  4. VITAMIN D [Concomitant]
  5. VITAMIN B [Concomitant]
  6. REBIF [Suspect]
     Indication: RELAPSING-REMITTING MULTIPLE SCLEROSIS
     Dates: start: 20020211
  7. VITAMIN E [Concomitant]
  8. VITAMIN A [Concomitant]

REACTIONS (5)
  - HEADACHE [None]
  - MACULAR OEDEMA [None]
  - HYPERTENSION [None]
  - CHILLS [None]
  - RETINAL VEIN OCCLUSION [None]
